FAERS Safety Report 5917245-1 (Version None)
Quarter: 2008Q4

REPORT INFORMATION
  Report Type: 
  Country: None (occurrence: None)
  Receive Date: 20081009
  Receipt Date: 20080930
  Transmission Date: 20090506
  Serious: Yes (Hospitalization)
  Sender: FDA-Public Use
  Company Number: 2008AL010584

PATIENT
  Age: 89 Year
  Sex: Female

DRUGS (1)
  1. DIGOXIN [Suspect]
     Dosage: PO - LATE JUNE
     Route: 048

REACTIONS (6)
  - BLOOD PRESSURE INCREASED [None]
  - EPISTAXIS [None]
  - HYPERTENSION [None]
  - LIVING IN RESIDENTIAL INSTITUTION [None]
  - MYOCARDIAL INFARCTION [None]
  - PARKINSON'S DISEASE [None]
